FAERS Safety Report 10183717 (Version 1)
Quarter: 2014Q2

REPORT INFORMATION
  Report Type: Spontaneous
  Country: US (occurrence: US)
  Receive Date: 20140520
  Receipt Date: 20140520
  Transmission Date: 20141212
  Serious: No
  Sender: FDA-Public Use
  Company Number: US-ENDO PHARMACEUTICALS INC.-BUTL20140005

PATIENT
  Sex: Female

DRUGS (1)
  1. BUTALBITAL/ACETAMINOPHEN/CAFFEINE/CODEINE PHOSPHATE CAPSULES [Suspect]
     Indication: HEADACHE
     Dosage: 50/325/40/30 MG
     Route: 048

REACTIONS (2)
  - Abdominal pain upper [Unknown]
  - Drug ineffective [Unknown]
